FAERS Safety Report 4916520-7 (Version None)
Quarter: 2006Q1

REPORT INFORMATION
  Report Type: 
  Country: None (occurrence: None)
  Receive Date: 20060220
  Receipt Date: 20060207
  Transmission Date: 20060701
  Serious: Yes (Hospitalization)
  Sender: FDA-Public Use
  Company Number: PHBS2006TR02210

PATIENT
  Age: 29 Year
  Sex: Male

DRUGS (1)
  1. DICLOFENAC SODIUM [Suspect]
     Indication: RENAL COLIC

REACTIONS (3)
  - BONE MARROW NECROSIS [None]
  - BONE PAIN [None]
  - PANCYTOPENIA [None]
